FAERS Safety Report 13211552 (Version 1)
Quarter: 2017Q1

REPORT INFORMATION
  Report Type: Report from Study
  Country: MX (occurrence: MX)
  Receive Date: 20170210
  Receipt Date: 20170210
  Transmission Date: 20170428
  Serious: Yes (Death, Other)
  Sender: FDA-Public Use
  Company Number: PHHY2017MX011605

PATIENT
  Age: 74 Year
  Sex: Female
  Weight: 66 kg

DRUGS (1)
  1. EXFORGE HCT [Suspect]
     Active Substance: AMLODIPINE BESYLATE\HYDROCHLOROTHIAZIDE\VALSARTAN
     Indication: HYPERTENSION
     Dosage: 1 DF (AMLODIPINE 10 MG, HYDROCHLOROTHIAZIDE 25 MG, VALSARTAN 320 MG), QD
     Route: 048
     Dates: start: 20161224

REACTIONS (3)
  - Cardio-respiratory arrest [Fatal]
  - Blood glucose increased [Fatal]
  - Blood electrolytes decreased [Unknown]

NARRATIVE: CASE EVENT DATE: 20161226
